FAERS Safety Report 5712813-4 (Version None)
Quarter: 2008Q2

REPORT INFORMATION
  Report Type: 
  Country: None (occurrence: None)
  Receive Date: 20080422
  Receipt Date: 20080417
  Transmission Date: 20081010
  Serious: Yes (Death, Life-Threatening, Other)
  Sender: FDA-Public Use
  Company Number: JP-ABBOTT-08P-087-0442520-00

PATIENT
  Sex: Male

DRUGS (35)
  1. KLARICID TABLETS [Suspect]
     Indication: PNEUMONIA
     Route: 048
     Dates: start: 20080222, end: 20080226
  2. NIFEDIPINE [Concomitant]
     Indication: HYPERTENSION
     Route: 048
     Dates: end: 20080227
  3. FUROSEMIDE [Concomitant]
     Indication: DRUG USE FOR UNKNOWN INDICATION
     Route: 048
     Dates: end: 20080227
  4. FUROSEMIDE [Concomitant]
     Indication: CARDIAC FAILURE
     Route: 042
     Dates: start: 20080227, end: 20080303
  5. FUROSEMIDE [Concomitant]
     Indication: RENAL FAILURE
  6. SPIRONOLACTONE [Concomitant]
     Indication: DRUG USE FOR UNKNOWN INDICATION
     Route: 048
     Dates: end: 20080227
  7. DIMETHICONE [Concomitant]
     Indication: DRUG USE FOR UNKNOWN INDICATION
     Route: 048
     Dates: end: 20080227
  8. MAGNESIUM OXIDE [Concomitant]
     Indication: CONSTIPATION
     Route: 048
     Dates: end: 20080227
  9. TSUKUSHI AM [Concomitant]
     Indication: GASTRITIS
     Dates: end: 20080227
  10. CIMETIDINE [Concomitant]
     Indication: GASTRITIS
     Route: 048
     Dates: end: 20080227
  11. CARTEOLOL HYDROCHLORIDE [Concomitant]
     Indication: GLAUCOMA
     Route: 046
  12. LATANOPROST [Concomitant]
     Indication: DRUG USE FOR UNKNOWN INDICATION
     Route: 046
  13. SPARFLOXACIN [Concomitant]
     Indication: PNEUMONIA
     Route: 048
     Dates: start: 20080226, end: 20080227
  14. NICORANDIL [Concomitant]
     Indication: ANGINA PECTORIS
     Route: 042
     Dates: start: 20080227, end: 20080301
  15. NICORANDIL [Concomitant]
     Indication: CARDIAC FAILURE
  16. DOPAMINE HYDROCHLORIDE [Concomitant]
     Indication: SHOCK
     Route: 042
     Dates: start: 20080227, end: 20080313
  17. GABEXATE MESILATE [Concomitant]
     Indication: DISSEMINATED INTRAVASCULAR COAGULATION
     Route: 042
     Dates: start: 20080227, end: 20080313
  18. PANIPENEM BETAMIPRON [Concomitant]
     Indication: PNEUMONIA
     Route: 042
     Dates: start: 20080227, end: 20080306
  19. OMEPRAZOLE [Concomitant]
     Indication: GASTRIC ULCER
     Route: 042
     Dates: start: 20080227, end: 20080304
  20. OMEPRAZOLE [Concomitant]
     Indication: REFLUX OESOPHAGITIS
  21. FAMOTIDINE [Concomitant]
     Indication: GASTRIC ULCER
     Route: 042
     Dates: start: 20080305, end: 20080309
  22. FAMOTIDINE [Concomitant]
     Indication: REFLUX OESOPHAGITIS
  23. ANTITHROMBIN III [Concomitant]
     Indication: DISSEMINATED INTRAVASCULAR COAGULATION
     Dosage: HUMAN, FREEZE-DRIED CONCENTRATED
     Route: 042
     Dates: start: 20080304, end: 20080304
  24. ANTITHROMBIN III [Concomitant]
     Route: 042
     Dates: start: 20080307, end: 20080307
  25. TREPIBUTONE [Concomitant]
     Indication: CHOLESTASIS
     Route: 048
     Dates: start: 20080310, end: 20080313
  26. LANSOPRAZOLE [Concomitant]
     Indication: GASTRIC ULCER
     Route: 048
     Dates: start: 20080310, end: 20080313
  27. LANSOPRAZOLE [Concomitant]
     Indication: REFLUX OESOPHAGITIS
  28. URSODIOL [Concomitant]
     Indication: CHOLESTASIS
     Route: 048
     Dates: start: 20080312, end: 20080313
  29. NORVANCOMYCIN HYDROCHLORIDE [Concomitant]
     Indication: PNEUMONIA
     Route: 042
     Dates: start: 20080312, end: 20080312
  30. ISOSORBIDE DINITRATE [Concomitant]
     Indication: ANGINA PECTORIS
     Dosage: ROUTE PERCUTANEOUS
     Dates: start: 20080311, end: 20080313
  31. ISOSORBIDE DINITRATE [Concomitant]
     Indication: CARDIAC FAILURE
  32. BLOOD AND RELATED PRODUCTS [Concomitant]
     Indication: EXCHANGE BLOOD TRANSFUSION
     Route: 042
  33. BLOOD AND RELATED PRODUCTS [Concomitant]
     Indication: PLATELET AGGREGATION DECREASED
  34. FUROSEMIDE [Concomitant]
     Route: 042
     Dates: start: 20080227, end: 20080303
  35. FUROSEMIDE [Concomitant]

REACTIONS (24)
  - ANURIA [None]
  - AUTOIMMUNE DISORDER [None]
  - BLOOD POTASSIUM INCREASED [None]
  - COMA [None]
  - CONDITION AGGRAVATED [None]
  - CYTOMEGALOVIRUS ANTIBODY POSITIVE [None]
  - DEPRESSED LEVEL OF CONSCIOUSNESS [None]
  - DIALYSIS [None]
  - DISSEMINATED INTRAVASCULAR COAGULATION [None]
  - EPSTEIN-BARR VIRUS ANTIBODY POSITIVE [None]
  - HAEMORRHAGIC DIATHESIS [None]
  - HEPATIC ATROPHY [None]
  - HEPATIC FUNCTION ABNORMAL [None]
  - HEPATITIS FULMINANT [None]
  - INFLAMMATION [None]
  - MALAISE [None]
  - MOVEMENT DISORDER [None]
  - OEDEMA [None]
  - OLIGURIA [None]
  - PNEUMONIA [None]
  - RENAL FAILURE [None]
  - RESPIRATORY ARREST [None]
  - RESPIRATORY DEPRESSION [None]
  - SHOCK [None]
